FAERS Safety Report 17255702 (Version 2)
Quarter: 2020Q4

REPORT INFORMATION
  Report Type: Spontaneous
  Country: DE (occurrence: DE)
  Receive Date: 20200110
  Receipt Date: 20201016
  Transmission Date: 20210113
  Serious: Yes (Other)
  Sender: FDA-Public Use
  Company Number: DE-SUN PHARMACEUTICAL INDUSTRIES LTD-2020RR-232904

PATIENT
  Age: 1 Day
  Sex: Male
  Weight: 2.81 kg

DRUGS (3)
  1. DOPEGYT [Concomitant]
     Active Substance: METHYLDOPA
     Indication: HYPERTENSION
     Dosage: 250 [MG/D ]
     Route: 064
     Dates: start: 20181019, end: 20190628
  2. METOPROLOL. [Concomitant]
     Active Substance: METOPROLOL
     Indication: HYPERTENSION
     Dosage: 23.75 [MG/D ]
     Route: 064
     Dates: start: 20181019, end: 20190628
  3. VENLAFAXINE [Suspect]
     Active Substance: VENLAFAXINE HYDROCHLORIDE
     Indication: DEPRESSION
     Dosage: 225 [MG/D ]/ VARYING DOSAGES BETWEEN 75 AND 225MG/D ()
     Route: 064
     Dates: start: 20181019, end: 20190628

REACTIONS (6)
  - Acoustic stimulation tests abnormal [Not Recovered/Not Resolved]
  - Hypotonia neonatal [Recovered/Resolved]
  - Neonatal respiratory failure [Recovered/Resolved]
  - Selective eating disorder [Recovered/Resolved]
  - Infantile apnoea [Recovered/Resolved]
  - Bradycardia neonatal [Recovered/Resolved]

NARRATIVE: CASE EVENT DATE: 20190628
